FAERS Safety Report 20626624 (Version 4)
Quarter: 2023Q4

REPORT INFORMATION
  Report Type: Spontaneous
  Country: US (occurrence: US)
  Receive Date: 20220323
  Receipt Date: 20231016
  Transmission Date: 20240109
  Serious: Yes (Death, Hospitalization)
  Sender: FDA-Public Use
  Company Number: US-JNJFOC-20220336269

PATIENT
  Sex: Male
  Weight: 100.5 kg

DRUGS (60)
  1. TYLENOL [Suspect]
     Active Substance: ACETAMINOPHEN
     Indication: Product used for unknown indication
     Route: 065
  2. MICAFUNGIN [Suspect]
     Active Substance: MICAFUNGIN SODIUM
     Indication: Product used for unknown indication
     Dosage: 100 MG, QD
     Route: 065
  3. MAGROLIMAB [Suspect]
     Active Substance: MAGROLIMAB
     Indication: Myeloproliferative neoplasm
     Route: 042
     Dates: start: 20211015, end: 20211015
  4. MAGROLIMAB [Suspect]
     Active Substance: MAGROLIMAB
     Route: 042
     Dates: start: 20211210, end: 20211210
  5. MAGROLIMAB [Suspect]
     Active Substance: MAGROLIMAB
     Route: 042
     Dates: start: 20220107, end: 20220107
  6. MAGROLIMAB [Suspect]
     Active Substance: MAGROLIMAB
     Route: 042
     Dates: start: 20211018, end: 20211018
  7. MAGROLIMAB [Suspect]
     Active Substance: MAGROLIMAB
     Route: 042
     Dates: start: 20211022, end: 20211022
  8. MAGROLIMAB [Suspect]
     Active Substance: MAGROLIMAB
     Route: 042
     Dates: start: 20211025, end: 20211025
  9. MAGROLIMAB [Suspect]
     Active Substance: MAGROLIMAB
     Route: 042
     Dates: start: 20211105, end: 20211105
  10. MAGROLIMAB [Suspect]
     Active Substance: MAGROLIMAB
     Route: 042
     Dates: start: 20211119, end: 20211119
  11. MAGROLIMAB [Suspect]
     Active Substance: MAGROLIMAB
     Route: 042
     Dates: start: 20211126, end: 20211126
  12. MAGROLIMAB [Suspect]
     Active Substance: MAGROLIMAB
     Route: 042
     Dates: start: 20211203, end: 20211203
  13. CYTARABINE [Suspect]
     Active Substance: CYTARABINE
     Indication: Myeloproliferative neoplasm
     Route: 042
     Dates: start: 20211015, end: 20211019
  14. CYTARABINE [Suspect]
     Active Substance: CYTARABINE
     Route: 042
     Dates: start: 20211119, end: 20211120
  15. CYTARABINE [Suspect]
     Active Substance: CYTARABINE
     Route: 042
     Dates: start: 20211222, end: 20211226
  16. ETOPOSIDE [Suspect]
     Active Substance: ETOPOSIDE
     Indication: Myeloproliferative neoplasm
     Route: 042
     Dates: start: 20211015, end: 20211019
  17. ETOPOSIDE [Suspect]
     Active Substance: ETOPOSIDE
     Route: 042
     Dates: start: 20211119, end: 20211120
  18. ETOPOSIDE [Suspect]
     Active Substance: ETOPOSIDE
     Route: 042
     Dates: start: 20211222, end: 20211226
  19. MITOXANTRONE [Suspect]
     Active Substance: MITOXANTRONE HYDROCHLORIDE
     Indication: Neoplasm malignant
     Route: 042
     Dates: start: 20211015, end: 20211019
  20. MITOXANTRONE [Suspect]
     Active Substance: MITOXANTRONE HYDROCHLORIDE
     Route: 042
     Dates: start: 20211119, end: 20211120
  21. MITOXANTRONE [Suspect]
     Active Substance: MITOXANTRONE HYDROCHLORIDE
     Route: 042
     Dates: start: 20211222, end: 20211222
  22. OXYCODONE [Concomitant]
     Active Substance: OXYCODONE
     Indication: Product used for unknown indication
     Route: 065
  23. ANUSOL A [Concomitant]
     Indication: Product used for unknown indication
     Route: 065
  24. PREPARATION H RECTAL [Concomitant]
     Indication: Product used for unknown indication
     Route: 065
  25. ENOXAPARIN SODIUM [Concomitant]
     Active Substance: ENOXAPARIN SODIUM
     Indication: Product used for unknown indication
     Route: 065
  26. AMPHOTERICIN B [Concomitant]
     Active Substance: AMPHOTERICIN B
     Indication: Product used for unknown indication
     Route: 065
     Dates: start: 20211221, end: 20211226
  27. PERIDEX [CHLORHEXIDINE GLUCONATE] [Concomitant]
     Indication: Product used for unknown indication
     Route: 065
     Dates: start: 20211029, end: 20220214
  28. LOVENOX [Concomitant]
     Active Substance: ENOXAPARIN SODIUM
     Indication: Product used for unknown indication
     Route: 065
     Dates: start: 20211221, end: 20211227
  29. BARACLUDE [Concomitant]
     Active Substance: ENTECAVIR
     Indication: Product used for unknown indication
     Route: 065
     Dates: start: 20211014, end: 20220206
  30. LIDODERM [Concomitant]
     Active Substance: LIDOCAINE
     Indication: Product used for unknown indication
     Route: 065
     Dates: start: 20211120
  31. ZYVOX [Concomitant]
     Active Substance: LINEZOLID
     Indication: Product used for unknown indication
     Route: 065
     Dates: start: 20211126, end: 20220209
  32. MYCOSTATIN [Concomitant]
     Active Substance: NYSTATIN
     Indication: Product used for unknown indication
     Route: 065
     Dates: start: 20220106
  33. ZOFRAN [Concomitant]
     Active Substance: ONDANSETRON HYDROCHLORIDE
     Indication: Product used for unknown indication
     Route: 065
     Dates: start: 20211015
  34. ZOVIRAX [Concomitant]
     Active Substance: ACYCLOVIR
     Indication: Product used for unknown indication
     Route: 065
     Dates: start: 20211014, end: 20220207
  35. LOPRESSOR [Concomitant]
     Active Substance: METOPROLOL TARTRATE
     Indication: Product used for unknown indication
     Route: 065
     Dates: start: 20211014
  36. PROTONIX [Concomitant]
     Active Substance: PANTOPRAZOLE SODIUM
     Indication: Product used for unknown indication
     Route: 065
     Dates: start: 20211014
  37. PROTONIX [Concomitant]
     Active Substance: PANTOPRAZOLE SODIUM
     Route: 065
  38. SODIUM CHLORIDE [Concomitant]
     Active Substance: SODIUM CHLORIDE
     Indication: Product used for unknown indication
     Route: 065
     Dates: start: 20211014
  39. DEXAMETHASONE [Concomitant]
     Active Substance: DEXAMETHASONE
     Indication: Product used for unknown indication
     Dosage: THERAPY END DATE : 1 YEAR 2 MONTHS 13 DAYS
     Route: 065
     Dates: start: 20211015
  40. BENADRYL [Concomitant]
     Active Substance: DIPHENHYDRAMINE HYDROCHLORIDE
     Indication: Product used for unknown indication
     Route: 065
     Dates: start: 20211015, end: 20220114
  41. BENADRYL [Concomitant]
     Active Substance: DIPHENHYDRAMINE HYDROCHLORIDE
     Route: 065
  42. ULTRAM [Concomitant]
     Active Substance: TRAMADOL HYDROCHLORIDE
     Indication: Product used for unknown indication
     Route: 065
     Dates: start: 20211015
  43. ULTRAM [Concomitant]
     Active Substance: TRAMADOL HYDROCHLORIDE
     Route: 065
  44. MICRO-K [Concomitant]
     Active Substance: POTASSIUM CHLORIDE
     Indication: Product used for unknown indication
     Route: 065
     Dates: start: 20211101
  45. MICRO-K [Concomitant]
     Active Substance: POTASSIUM CHLORIDE
     Route: 065
  46. LASIX [Concomitant]
     Active Substance: FUROSEMIDE
     Indication: Product used for unknown indication
     Route: 065
     Dates: start: 20211019, end: 20220208
  47. MAXIPIME [Concomitant]
     Active Substance: CEFEPIME HYDROCHLORIDE
     Indication: Product used for unknown indication
     Route: 065
     Dates: start: 20211023, end: 20211227
  48. ALTEPLASE [Concomitant]
     Active Substance: ALTEPLASE
     Indication: Product used for unknown indication
     Route: 065
     Dates: start: 20211025, end: 20220206
  49. DILAUDID [Concomitant]
     Active Substance: HYDROMORPHONE HYDROCHLORIDE
     Indication: Product used for unknown indication
     Route: 065
     Dates: start: 20211025, end: 20220128
  50. ANUSOL HC [Concomitant]
     Active Substance: HYDROCORTISONE
     Indication: Product used for unknown indication
     Route: 065
     Dates: start: 20211103, end: 20220106
  51. PERCOCET [Concomitant]
     Active Substance: ACETAMINOPHEN\OXYCODONE HYDROCHLORIDE
     Indication: Product used for unknown indication
     Route: 065
     Dates: start: 20211111
  52. MICRO K [Concomitant]
     Indication: Product used for unknown indication
     Route: 065
     Dates: start: 20211114
  53. ROXICODONE [Concomitant]
     Active Substance: OXYCODONE HYDROCHLORIDE
     Indication: Product used for unknown indication
     Route: 065
     Dates: start: 20211115
  54. KENALOG [Concomitant]
     Active Substance: TRIAMCINOLONE ACETONIDE
     Indication: Product used for unknown indication
     Route: 065
     Dates: start: 20211117
  55. BUMEX [Concomitant]
     Active Substance: BUMETANIDE
     Indication: Product used for unknown indication
     Route: 065
     Dates: start: 20211120, end: 20220205
  56. MEROPENEM [Concomitant]
     Active Substance: MEROPENEM
     Indication: Product used for unknown indication
     Route: 065
     Dates: start: 20211121, end: 20220214
  57. MYCAMINE [Concomitant]
     Active Substance: MICAFUNGIN SODIUM
     Indication: Product used for unknown indication
     Route: 065
     Dates: start: 20211121
  58. SODIUM FLUORIDE\SODIUM MONOFLUOROPHOSPHATE [Concomitant]
     Active Substance: SODIUM FLUORIDE\SODIUM MONOFLUOROPHOSPHATE
     Indication: Product used for unknown indication
     Route: 065
  59. TYLENOL [Concomitant]
     Active Substance: ACETAMINOPHEN
     Indication: Product used for unknown indication
     Route: 065
     Dates: start: 20211015, end: 20220215
  60. CRESEMBA [Concomitant]
     Active Substance: ISAVUCONAZONIUM SULFATE
     Indication: Product used for unknown indication
     Route: 065
     Dates: start: 20211015, end: 20220206

REACTIONS (1)
  - Febrile neutropenia [Fatal]

NARRATIVE: CASE EVENT DATE: 20220106
